FAERS Safety Report 4998639-8 (Version None)
Quarter: 2006Q2

REPORT INFORMATION
  Report Type: 
  Country: None (occurrence: None)
  Receive Date: 20060509
  Receipt Date: 20060425
  Transmission Date: 20061013
  Serious: Yes (Hospitalization)
  Sender: FDA-Public Use
  Company Number: GXKR2006JP01597

PATIENT
  Age: 43 Year
  Sex: Male

DRUGS (8)
  1. DOXORUBICIN HCL [Suspect]
     Indication: NON-HODGKIN'S LYMPHOMA
     Dates: start: 19920101
  2. CYCLOPHOSPHAMIDE [Suspect]
     Indication: NON-HODGKIN'S LYMPHOMA
     Dosage: SEE IMAGE
     Dates: start: 19920101
  3. CYCLOPHOSPHAMIDE [Suspect]
     Indication: NON-HODGKIN'S LYMPHOMA
     Dosage: SEE IMAGE
     Dates: start: 20010601
  4. VINCRISTINE [Suspect]
     Indication: NON-HODGKIN'S LYMPHOMA
     Dates: start: 19920101
  5. METHOTREXATE [Suspect]
     Indication: NON-HODGKIN'S LYMPHOMA
     Dates: start: 19920101
  6. BLEOMYCIN (NGX) (BLEOMYCIN SULFATE) [Concomitant]
     Indication: NON-HODGKIN'S LYMPHOMA
     Dates: start: 19920101
  7. PREDNISOLONE [Suspect]
     Indication: NON-HODGKIN'S LYMPHOMA
     Dates: start: 19920101
  8. PREDNISOLONE [Suspect]
     Indication: NON-HODGKIN'S LYMPHOMA
     Dates: start: 20010201

REACTIONS (5)
  - ANAEMIA [None]
  - DIZZINESS [None]
  - EOSINOPHILIC LEUKAEMIA [None]
  - HYPEREOSINOPHILIC SYNDROME [None]
  - THROMBOCYTOPENIA [None]
